FAERS Safety Report 13619737 (Version 2)
Quarter: 2017Q2

REPORT INFORMATION
  Report Type: Report from Study
  Country: US (occurrence: US)
  Receive Date: 20170606
  Receipt Date: 20170619
  Transmission Date: 20170830
  Serious: Yes (Hospitalization, Other)
  Sender: FDA-Public Use
  Company Number: US-VIFOR (INTERNATIONAL) INC.-VIT-2017-06299

PATIENT
  Age: 47 Year
  Sex: Male

DRUGS (2)
  1. VELTASSA [Suspect]
     Active Substance: PATIROMER
     Dates: start: 20170323
  2. VELTASSA [Suspect]
     Active Substance: PATIROMER
     Indication: PRODUCT USED FOR UNKNOWN INDICATION
     Dates: start: 20170323

REACTIONS (3)
  - Inappropriate schedule of drug administration [Unknown]
  - Hospitalisation [Unknown]
  - Atrioventricular block [Unknown]

NARRATIVE: CASE EVENT DATE: 2017
